FAERS Safety Report 4743240-4 (Version None)
Quarter: 2005Q3

REPORT INFORMATION
  Report Type: 
  Country: None (occurrence: None)
  Receive Date: 20050811
  Receipt Date: 20050726
  Transmission Date: 20060218
  Serious: Yes (Hospitalization)
  Sender: FDA-Public Use
  Company Number: 2005BI014191

PATIENT
  Age: 44 Year
  Sex: Male
  Weight: 119.296 kg

DRUGS (5)
  1. AVONEX [Suspect]
     Indication: MULTIPLE SCLEROSIS
     Dosage: 30 UG;QW; IM
     Route: 030
     Dates: start: 20010101, end: 20030101
  2. AVONEX [Suspect]
     Indication: MULTIPLE SCLEROSIS
     Dosage: 30 UG QW; IM
     Route: 030
     Dates: start: 20030101
  3. SOMA [Concomitant]
  4. FAMOTIDINE [Concomitant]
  5. TYLENOL (CAPLET) [Concomitant]

REACTIONS (5)
  - ABDOMINAL PAIN [None]
  - ERECTILE DYSFUNCTION [None]
  - GALLBLADDER ENLARGEMENT [None]
  - HYPOAESTHESIA [None]
  - NEURALGIA [None]
